FAERS Safety Report 10395225 (Version 7)
Quarter: 2015Q2

REPORT INFORMATION
  Report Type: Spontaneous
  Country: FR (occurrence: FR)
  Receive Date: 20140820
  Receipt Date: 20150612
  Transmission Date: 20150821
  Serious: Yes (Hospitalization, Disabling)
  Sender: FDA-Public Use
  Company Number: FR-009507513-1406FRA001917

PATIENT
  Sex: Female

DRUGS (6)
  1. VICTRELIS [Suspect]
     Active Substance: BOCEPREVIR
     Indication: HEPATITIS C
     Dosage: 4 CAPSULES THREE TIMES A DAY, TOTAL DAILY DOSE: 12 CAPS, TO START AFTER 4 WEEKS OF BI THERAPY
     Route: 048
     Dates: start: 20121221, end: 20131025
  2. ASCORBIC ACID. [Concomitant]
     Active Substance: ASCORBIC ACID
     Dosage: 1 TABLET, IN THE MORNING
     Route: 048
  3. DAFALGAN [Concomitant]
     Active Substance: ACETAMINOPHEN
     Dosage: UNK
     Route: 048
  4. PEGASYS [Suspect]
     Active Substance: PEGINTERFERON ALFA-2A
     Indication: HEPATITIS C
     Dosage: 1 INJECTION, QW
     Route: 058
     Dates: start: 20121123, end: 20131025
  5. COPEGUS [Suspect]
     Active Substance: RIBAVIRIN
     Indication: HEPATITIS C
     Dosage: 5 TABS, QD (2 TABLETS IN THE MORNING AND 3 TABLETS IN THE EVENING)
     Route: 048
     Dates: start: 20121123, end: 20131025
  6. TOCO [Concomitant]
     Active Substance: UNSPECIFIED INGREDIENT
     Dosage: 1 TAB, QAM
     Route: 048

REACTIONS (38)
  - Pelvic pain [Unknown]
  - Fatigue [Unknown]
  - Photophobia [Recovering/Resolving]
  - Panic attack [Recovering/Resolving]
  - Haemorrhage [Recovering/Resolving]
  - Hypothyroidism [Unknown]
  - Neck pain [Recovering/Resolving]
  - Hepatic cirrhosis [Unknown]
  - Metrorrhagia [Unknown]
  - Headache [Recovering/Resolving]
  - Liver injury [Unknown]
  - Neutropenia [Recovering/Resolving]
  - No therapeutic response [Unknown]
  - Asthenia [Unknown]
  - Muscle spasms [Unknown]
  - Eye infection [Recovering/Resolving]
  - Visual impairment [Unknown]
  - Depression [Recovering/Resolving]
  - Dysgeusia [Unknown]
  - Insomnia [Recovering/Resolving]
  - Influenza [Unknown]
  - Dry skin [Unknown]
  - Depression [Unknown]
  - Ophthalmic herpes zoster [Unknown]
  - Pain [Unknown]
  - Malaise [Recovering/Resolving]
  - Urinary tract infection [Recovering/Resolving]
  - Haemorrhage [Unknown]
  - Disturbance in attention [Recovering/Resolving]
  - Irritability [Recovering/Resolving]
  - Hyperthermia [Unknown]
  - Palpitations [Unknown]
  - Memory impairment [Unknown]
  - Epistaxis [Unknown]
  - Heart rate increased [Recovering/Resolving]
  - Thrombocytopenia [Unknown]
  - Asthenia [Recovering/Resolving]
  - Rash [Unknown]

NARRATIVE: CASE EVENT DATE: 201212
